FAERS Safety Report 16948055 (Version 1)
Quarter: 2019Q4

REPORT INFORMATION
  Report Type: Spontaneous
  Country: US (occurrence: US)
  Receive Date: 20191022
  Receipt Date: 20191022
  Transmission Date: 20200122
  Serious: No
  Sender: FDA-Public Use
  Company Number: US-ROCHE-2350210

PATIENT
  Sex: Male

DRUGS (6)
  1. MELATONIN [Concomitant]
     Active Substance: MELATONIN
  2. SIMVASTATIN. [Concomitant]
     Active Substance: SIMVASTATIN
  3. POTASSIUM [Concomitant]
     Active Substance: POTASSIUM
  4. ESBRIET [Suspect]
     Active Substance: PIRFENIDONE
     Indication: IDIOPATHIC PULMONARY FIBROSIS
     Route: 048
  5. OMEPRAZOLE. [Concomitant]
     Active Substance: OMEPRAZOLE
  6. ASPIRIN 81 [Concomitant]
     Active Substance: ASPIRIN

REACTIONS (2)
  - No adverse event [Unknown]
  - Product dose omission [Unknown]
